FAERS Safety Report 16591775 (Version 1)
Quarter: 2019Q3

REPORT INFORMATION
  Report Type: Spontaneous
  Country: GB (occurrence: GB)
  Receive Date: 20190718
  Receipt Date: 20190718
  Transmission Date: 20191004
  Serious: Yes (Hospitalization, Disabling, Other)
  Sender: FDA-Public Use
  Company Number: GB-JNJFOC-20190712623

PATIENT
  Age: 91 Year
  Sex: Female
  Weight: 78.25 kg

DRUGS (11)
  1. SIMVASTATIN. [Concomitant]
     Active Substance: SIMVASTATIN
     Dosage: 40 MG, QD
  2. MACROGOL;POTASSIUM CHLORIDE;SODIUM BICARBONATE;SODIUM CHLORIDE [Concomitant]
     Dosage: 3 DF, QD
  3. APIXABAN [Suspect]
     Active Substance: APIXABAN
     Indication: ATRIAL FIBRILLATION
     Dates: start: 20190605, end: 20190607
  4. COLECALCIFEROL [Concomitant]
     Active Substance: CHOLECALCIFEROL
     Dosage: 50000 IU, UNK
  5. CASSIA SENNA [Concomitant]
     Active Substance: HERBALS\SENNOSIDES
     Dosage: 15 MG, QD
  6. DOCUSATE [Concomitant]
     Active Substance: DOCUSATE
     Dosage: 100 MG, QD
  7. RIVAROXABAN [Suspect]
     Active Substance: RIVAROXABAN
     Indication: ATRIAL FIBRILLATION
     Route: 048
     Dates: start: 20190607, end: 20190609
  8. RAMIPRIL. [Concomitant]
     Active Substance: RAMIPRIL
     Dosage: 10 MG, QD
  9. DALTEPARIN [Concomitant]
     Active Substance: DALTEPARIN
     Dosage: 5000 IU, UNK
  10. BISOPROLOL [Concomitant]
     Active Substance: BISOPROLOL
     Dosage: 10 MG, UNK
  11. OMEPRAZOLE. [Concomitant]
     Active Substance: OMEPRAZOLE

REACTIONS (3)
  - Aggression [Recovered/Resolved]
  - Agitation [Recovered/Resolved]
  - Delirium [Recovered/Resolved]

NARRATIVE: CASE EVENT DATE: 20190605
